FAERS Safety Report 10030374 (Version 2)
Quarter: 2014Q1

REPORT INFORMATION
  Report Type: Spontaneous
  Country: US (occurrence: US)
  Receive Date: 20140323
  Receipt Date: 20140323
  Transmission Date: 20141002
  Serious: No
  Sender: FDA-Public Use
  Company Number: US-ALLERGAN-1313283US

PATIENT
  Age: 72 Year
  Sex: Female

DRUGS (6)
  1. LATISSE 0.03% [Suspect]
     Indication: GROWTH OF EYELASHES
     Dosage: 1 GTT, ONCE A NIGHT ON MONDAYS, WEDNESDAYS AND FRIDAYS
     Route: 061
  2. LATISSE 0.03% [Suspect]
     Dosage: 1 GTT, THREE NIGHTS A WEEK
     Route: 061
     Dates: start: 201302, end: 20130827
  3. LATISSE 0.03% [Suspect]
     Dosage: 1 GTT, FIVE TIMES A WEEK
     Route: 061
     Dates: start: 2011, end: 201302
  4. WATER DROPS NOS [Concomitant]
     Indication: DRY EYE
     Dosage: UNK
  5. CROMOLYN                           /00082101/ [Concomitant]
     Indication: EYE PRURITUS
     Dosage: 2 GTT, PRN
     Route: 047
     Dates: start: 2011
  6. SYSTANE [Concomitant]
     Indication: DRY EYE
     Dosage: 2 GTT, TID TO QID
     Route: 047
     Dates: start: 2011

REACTIONS (6)
  - Erythema [Recovering/Resolving]
  - Hypopigmentation of eyelid [Recovering/Resolving]
  - Inappropriate schedule of drug administration [Unknown]
  - Wrong technique in drug usage process [Unknown]
  - Wrong technique in drug usage process [Unknown]
  - Erythema of eyelid [Recovered/Resolved]
